FAERS Safety Report 15372341 (Version 1)
Quarter: 2018Q3

REPORT INFORMATION
  Report Type: Spontaneous
  Country: US (occurrence: US)
  Receive Date: 20180911
  Receipt Date: 20180911
  Transmission Date: 20181010
  Serious: Yes (Other)
  Sender: FDA-Public Use
  Company Number: US-CELGENEUS-USA-20180810310

PATIENT
  Age: 63 Year
  Sex: Female

DRUGS (4)
  1. THALOMID [Suspect]
     Active Substance: THALIDOMIDE
     Dosage: 150MG?200MG
     Route: 048
     Dates: start: 200609
  2. THALOMID [Suspect]
     Active Substance: THALIDOMIDE
     Dosage: 100MG?50MG
     Route: 048
     Dates: start: 200711
  3. THALOMID [Suspect]
     Active Substance: THALIDOMIDE
     Indication: PLASMA CELL MYELOMA IN REMISSION
     Dosage: 200 MILLIGRAM
     Route: 048
     Dates: start: 200608
  4. THALOMID [Suspect]
     Active Substance: THALIDOMIDE
     Dosage: 50 MILLIGRAM
     Route: 048
     Dates: start: 20130313

REACTIONS (1)
  - Kawasaki^s disease [Unknown]

NARRATIVE: CASE EVENT DATE: 20180813
